FAERS Safety Report 13355796 (Version 1)
Quarter: 2017Q1

REPORT INFORMATION
  Report Type: Spontaneous
  Country: US (occurrence: US)
  Receive Date: 20170321
  Receipt Date: 20170321
  Transmission Date: 20170429
  Serious: Yes (Other)
  Sender: FDA-Public Use
  Company Number: US-MEDA-2017030022

PATIENT
  Sex: Female
  Weight: 85 kg

DRUGS (1)
  1. FELBATOL [Suspect]
     Active Substance: FELBAMATE
     Indication: EPILEPSY
     Dosage: 3 TABLETS IN MORNING, 2 TABLETS MID DAY AND 3 TABLETS AT SLEEP TIME IN A DAY
     Route: 048

REACTIONS (1)
  - Epilepsy [Not Recovered/Not Resolved]
